FAERS Safety Report 12736052 (Version 1)
Quarter: 2016Q3

REPORT INFORMATION
  Report Type: Spontaneous
  Country: JP (occurrence: JP)
  Receive Date: 20160912
  Receipt Date: 20160912
  Transmission Date: 20161109
  Serious: Yes (Other)
  Sender: FDA-Public Use
  Company Number: JP-PFIZER INC-2016418871

PATIENT
  Age: 53 Year
  Sex: Female

DRUGS (2)
  1. UNASYN [Suspect]
     Active Substance: AMPICILLIN SODIUM\SULBACTAM SODIUM
     Indication: ENDOCARDITIS
  2. GENTACIN [Concomitant]
     Active Substance: GENTAMICIN SULFATE
     Indication: ENDOCARDITIS

REACTIONS (2)
  - Renal impairment [Unknown]
  - Product use issue [Unknown]
